FAERS Safety Report 21603444 (Version 4)
Quarter: 2023Q2

REPORT INFORMATION
  Report Type: Spontaneous
  Country: JP (occurrence: JP)
  Receive Date: 20221116
  Receipt Date: 20230502
  Transmission Date: 20230722
  Serious: Yes (Death, Other)
  Sender: FDA-Public Use
  Company Number: JP-MSD-M2022-46021

PATIENT
  Age: 78 Year
  Sex: Female
  Weight: 28 kg

DRUGS (8)
  1. LAGEVRIO [Suspect]
     Active Substance: MOLNUPIRAVIR
     Indication: COVID-19 treatment
     Dosage: 800 MILLIGRAM, BID
     Route: 048
     Dates: start: 20220805, end: 20220809
  2. AMLODIPINE BESYLATE [Concomitant]
     Active Substance: AMLODIPINE BESYLATE
     Indication: Hypertension
     Dosage: 5 MILLIGRAM, QD
     Dates: start: 20210708, end: 20221006
  3. LANSOPRAZOLE [Concomitant]
     Active Substance: LANSOPRAZOLE
     Indication: Gastrooesophageal reflux disease
     Dosage: 15 MILLIGRAM, QD
     Dates: start: 20210708, end: 20221030
  4. URAPIDIL [Concomitant]
     Active Substance: URAPIDIL
     Indication: Neurogenic bladder
     Dosage: 15 MILLIGRAM, BID
     Dates: start: 20210708, end: 20221030
  5. POTASSIUM GLUCONATE [Concomitant]
     Active Substance: POTASSIUM GLUCONATE
     Indication: Hypokalaemia
     Dosage: 2 GRAM, TID
     Dates: start: 20220124, end: 20221030
  6. POLAPREZINC [Concomitant]
     Active Substance: POLAPREZINC
     Indication: Gastric ulcer
     Dosage: 75 MILLIGRAM, BID
     Dates: start: 20220308, end: 20221030
  7. INSULIN ASPART BS [Concomitant]
     Indication: Type 1 diabetes mellitus
     Dosage: AS NECESSARY, TID
     Route: 058
     Dates: start: 20220708, end: 20221030
  8. NEGMIN SUGAR [Concomitant]
     Indication: Decubitus ulcer
     Dosage: AS NECESSARY, QD
     Route: 003
     Dates: start: 20210714, end: 20221030

REACTIONS (3)
  - Pneumonia aspiration [Fatal]
  - Pneumonia bacterial [Fatal]
  - Drug ineffective [Unknown]

NARRATIVE: CASE EVENT DATE: 20220809
